FAERS Safety Report 10087069 (Version 2)
Quarter: 2014Q2

REPORT INFORMATION
  Report Type: Spontaneous
  Country: BR (occurrence: BR)
  Receive Date: 20140418
  Receipt Date: 20140418
  Transmission Date: 20141212
  Serious: Yes (Hospitalization, Other)
  Sender: FDA-Public Use
  Company Number: BR-ELI_LILLY_AND_COMPANY-BR201404001875

PATIENT
  Age: 14 Year
  Sex: Female
  Weight: 46 kg

DRUGS (3)
  1. HUMALOG [Suspect]
     Indication: BLOOD GLUCOSE ABNORMAL
     Dosage: 5 IU, TID
     Route: 058
     Dates: start: 2010
  2. TORLOS [Concomitant]
     Indication: PRODUCT USED FOR UNKNOWN INDICATION
     Dosage: UNK, UNKNOWN
     Route: 065
  3. LANTUS [Concomitant]
     Indication: PRODUCT USED FOR UNKNOWN INDICATION
     Dosage: UNK, UNKNOWN
     Route: 065

REACTIONS (5)
  - Diabetic ketoacidosis [Recovered/Resolved]
  - Diabetic ketoacidosis [Recovered/Resolved]
  - Diabetes mellitus [Recovered/Resolved]
  - Infection [Recovered/Resolved]
  - Vulvovaginal injury [Recovered/Resolved]
